FAERS Safety Report 9691607 (Version 1)
Quarter: 2013Q4

REPORT INFORMATION
  Report Type: Spontaneous
  Country: US (occurrence: US)
  Receive Date: 20131115
  Receipt Date: 20131115
  Transmission Date: 20140711
  Serious: Yes (Death, Other)
  Sender: FDA-Public Use
  Company Number: US-ASTRAZENECA-2013SE81516

PATIENT
  Age: 89 Year
  Sex: Male

DRUGS (3)
  1. BRILINTA [Suspect]
     Indication: ACUTE MYOCARDIAL INFARCTION
     Route: 048
     Dates: start: 20131029
  2. COUMADIN [Concomitant]
     Indication: ATRIAL FIBRILLATION
  3. ASPIRIN [Concomitant]

REACTIONS (3)
  - Cardiac disorder [Fatal]
  - Dressler^s syndrome [Fatal]
  - Atrial fibrillation [Unknown]
